FAERS Safety Report 12466297 (Version 1)
Quarter: 2016Q2

REPORT INFORMATION
  Report Type: Spontaneous
  Country: ES (occurrence: ES)
  Receive Date: 20160614
  Receipt Date: 20160614
  Transmission Date: 20160815
  Serious: Yes (Other)
  Sender: FDA-Public Use
  Company Number: ES-AMGEN-ESPSP2015109206

PATIENT
  Age: 72 Year
  Sex: Female

DRUGS (13)
  1. ENBREL [Suspect]
     Active Substance: ETANERCEPT
     Dosage: 50 MG, WEEKLY (ON SUNDAYS)
     Route: 058
     Dates: end: 20160508
  2. METHOTREXATE [Concomitant]
     Active Substance: METHOTREXATE
     Indication: PSORIATIC ARTHROPATHY
     Dosage: UNK
  3. ENBREL [Suspect]
     Active Substance: ETANERCEPT
     Indication: ANKYLOSING SPONDYLITIS
     Dosage: 50 MG, WEEKLY (ON TUESDAYS)
     Route: 058
     Dates: start: 20150925, end: 2015
  4. BIALFOLI [Concomitant]
     Dosage: 5 MG, WEEKLY (ON FRIDAYS)
  5. BINOSTO [Concomitant]
     Active Substance: ALENDRONATE SODIUM
     Indication: BONE DISORDER
     Dosage: 70 MG, TABLET, EVERY 7 DAYS
  6. ENBREL [Suspect]
     Active Substance: ETANERCEPT
     Indication: PSORIATIC ARTHROPATHY
     Dosage: 50 MG, WEEKLY (ON THURSDAYS)
     Route: 058
     Dates: start: 2015
  7. ZAMENE [Concomitant]
     Active Substance: DEFLAZACORT
     Indication: PSORIATIC ARTHROPATHY
     Dosage: 6 MG, ONCE EVERY 24 HOURS AND 3 MG EVERY 24 HOURS (ALTERNATE DAYS)
  8. BONESIL D FLAS [Concomitant]
     Indication: BONE DISORDER
     Dosage: 1500 MG/400 IU, 1X/24H
  9. METHOTREXATE [Concomitant]
     Active Substance: METHOTREXATE
     Indication: PSORIATIC ARTHROPATHY
     Dosage: 1 INJECTION, WEEKLY (ON FRIDAYS)
     Route: 058
  10. ZAMENE [Concomitant]
     Active Substance: DEFLAZACORT
     Indication: ANKYLOSING SPONDYLITIS
     Dosage: UNK
  11. ZAMENE [Concomitant]
     Active Substance: DEFLAZACORT
  12. METHOTREXATE [Concomitant]
     Active Substance: METHOTREXATE
     Indication: ANKYLOSING SPONDYLITIS
     Dosage: 1 INJECTION, WEEKLY (ON FRIDAYS)
     Route: 058
  13. HIDROFEROL [Concomitant]
     Active Substance: CALCIFEDIOL
     Dosage: 266 MCG AMPOULES, 1 EVERY 15 DAYS

REACTIONS (25)
  - Secretion discharge [Not Recovered/Not Resolved]
  - Skin discolouration [Unknown]
  - Erythema [Recovered/Resolved]
  - Nail discolouration [Unknown]
  - Haematoma [Unknown]
  - Bronchitis [Recovering/Resolving]
  - Cyanosis [Unknown]
  - Paraesthesia [Unknown]
  - Petechiae [Unknown]
  - Herpes virus infection [Not Recovered/Not Resolved]
  - Anal haemorrhage [Unknown]
  - Epistaxis [Unknown]
  - Dizziness [Recovering/Resolving]
  - Condition aggravated [Recovering/Resolving]
  - Cough [Not Recovered/Not Resolved]
  - Visual impairment [Unknown]
  - Joint swelling [Unknown]
  - Hot flush [Recovered/Resolved]
  - Coagulopathy [Unknown]
  - Head discomfort [Unknown]
  - Pain in extremity [Unknown]
  - Mobility decreased [Unknown]
  - Oral herpes [Not Recovered/Not Resolved]
  - Feeling hot [Recovered/Resolved]
  - Sinusitis [Not Recovered/Not Resolved]

NARRATIVE: CASE EVENT DATE: 2015
